FAERS Safety Report 9407842 (Version 1)
Quarter: 2013Q3

REPORT INFORMATION
  Report Type: Spontaneous
  Country: ES (occurrence: ES)
  Receive Date: 20130718
  Receipt Date: 20130718
  Transmission Date: 20140515
  Serious: Yes (Other)
  Sender: FDA-Public Use
  Company Number: ES-PERRIGO-13ES007101

PATIENT
  Sex: 0

DRUGS (1)
  1. NAPROXEN SODIUM 220 MG 368 [Suspect]
     Indication: PRODUCT USED FOR UNKNOWN INDICATION
     Dosage: UNK, UNK
     Route: 048

REACTIONS (2)
  - Colitis microscopic [Recovered/Resolved]
  - Diarrhoea [Recovered/Resolved]
